FAERS Safety Report 13386622 (Version 1)
Quarter: 2017Q1

REPORT INFORMATION
  Report Type: Spontaneous
  Country: GB (occurrence: GB)
  Receive Date: 20170330
  Receipt Date: 20170330
  Transmission Date: 20170429
  Serious: Yes (Other)
  Sender: FDA-Public Use
  Company Number: GB-TORRENT-00015128

PATIENT
  Sex: Female

DRUGS (10)
  1. PROLIA [Concomitant]
     Active Substance: DENOSUMAB
  2. ALENDRONIC ACID [Suspect]
     Active Substance: ALENDRONIC ACID
  3. AMITRIPTYLINE [Suspect]
     Active Substance: AMITRIPTYLINE
  4. LANSOPRAZOLE. [Suspect]
     Active Substance: LANSOPRAZOLE
  5. ARIPIPRAZOLE. [Suspect]
     Active Substance: ARIPIPRAZOLE
  6. ADCAL-D3 [Concomitant]
     Active Substance: CALCIUM CARBONATE\CHOLECALCIFEROL
  7. SANDOZ AMLODIPINE [Suspect]
     Active Substance: AMLODIPINE MALEATE
  8. SANDOZ LTD BISOPROLOL [Suspect]
     Active Substance: BISOPROLOL
  9. DOXAZOSIN [Suspect]
     Active Substance: DOXAZOSIN\DOXAZOSIN MESYLATE
  10. OXPRENOLOL [Suspect]
     Active Substance: OXPRENOLOL

REACTIONS (14)
  - Rectal prolapse [Unknown]
  - Dyspnoea [Unknown]
  - Bone pain [Unknown]
  - Arthralgia [Unknown]
  - Muscle spasms [Unknown]
  - Constipation [Unknown]
  - Pain [Unknown]
  - Headache [Unknown]
  - Infection [Recovering/Resolving]
  - Burning sensation [Unknown]
  - Influenza [Unknown]
  - Dysuria [Unknown]
  - Myalgia [Unknown]
  - Rhinorrhoea [Unknown]
